FAERS Safety Report 21460221 (Version 1)
Quarter: 2022Q4

REPORT INFORMATION
  Report Type: Spontaneous
  Country: US (occurrence: US)
  Receive Date: 20221014
  Receipt Date: 20221014
  Transmission Date: 20230112
  Serious: No
  Sender: FDA-Public Use
  Company Number: US-Indivior Limited-INDV-131300-2021

PATIENT
  Age: 20 Year
  Sex: Female

DRUGS (5)
  1. SUBLOCADE [Suspect]
     Active Substance: BUPRENORPHINE
     Indication: Drug use disorder
     Dosage: 300 MILLIGRAM, QMO
     Route: 058
     Dates: start: 20210824
  2. FENTANYL [Suspect]
     Active Substance: FENTANYL
     Indication: Product used for unknown indication
     Dosage: UNK
     Route: 065
  3. HEROIN [Suspect]
     Active Substance: DIAMORPHINE
     Indication: Product used for unknown indication
     Dosage: UNK
     Route: 045
     Dates: start: 2016
  4. HEROIN [Suspect]
     Active Substance: DIAMORPHINE
     Dosage: UNK
     Route: 042
  5. HEROIN [Suspect]
     Active Substance: DIAMORPHINE
     Dosage: UNK
     Route: 055

REACTIONS (7)
  - Restless legs syndrome [Unknown]
  - Dental discomfort [Unknown]
  - Drug dependence [Unknown]
  - Drug withdrawal syndrome [Unknown]
  - Drug dependence [Unknown]
  - Anxiety [Unknown]
  - Restlessness [Unknown]

NARRATIVE: CASE EVENT DATE: 20210101
